FAERS Safety Report 7917102-5 (Version None)
Quarter: 2011Q4

REPORT INFORMATION
  Report Type: 
  Country: None (occurrence: None)
  Receive Date: 20111116
  Receipt Date: 20111108
  Transmission Date: 20120403
  Serious: Yes (Life-Threatening, Hospitalization)
  Sender: FDA-Public Use
  Company Number: SE-COVIDIEN/TYCO HEALTHCARE/MALLINCKRODT-T201102579

PATIENT
  Sex: Female

DRUGS (3)
  1. TAVEGYL                            /00137201/ [Concomitant]
     Indication: PREMEDICATION
     Dosage: UNK
     Dates: start: 20111101, end: 20111101
  2. OPTIRAY 160 [Suspect]
     Indication: COMPUTERISED TOMOGRAM
     Dosage: 92 ML, SINGLE
     Route: 042
     Dates: start: 20111101, end: 20111101
  3. PREDNISOLONE [Concomitant]
     Indication: PREMEDICATION
     Dosage: UNK
     Dates: start: 20111101, end: 20111101

REACTIONS (2)
  - URTICARIA [None]
  - DYSPNOEA [None]
